FAERS Safety Report 5980112-1 (Version None)
Quarter: 2008Q4

REPORT INFORMATION
  Report Type: 
  Country: None (occurrence: None)
  Receive Date: 20081205
  Receipt Date: 20081030
  Transmission Date: 20090506
  Serious: No
  Sender: FDA-Public Use
  Company Number: US-BAYER-200834453NA

PATIENT
  Sex: Female

DRUGS (1)
  1. MIRENA [Suspect]
     Indication: DRUG USE FOR UNKNOWN INDICATION
     Route: 015
     Dates: start: 20030801

REACTIONS (4)
  - AMENORRHOEA [None]
  - NO ADVERSE EVENT [None]
  - PREGNANCY [None]
  - SKIN DISCOLOURATION [None]
